FAERS Safety Report 16050481 (Version 1)
Quarter: 2019Q1

REPORT INFORMATION
  Report Type: Spontaneous
  Country: FR (occurrence: FR)
  Receive Date: 20190308
  Receipt Date: 20190308
  Transmission Date: 20190418
  Serious: Yes (Other)
  Sender: FDA-Public Use
  Company Number: FR-GLAXOSMITHKLINE-FR2019GSK042331

PATIENT
  Sex: Female

DRUGS (4)
  1. NICOPASS [Suspect]
     Active Substance: NICOTINE
     Indication: SMOKING CESSATION THERAPY
     Dosage: 2.5 MG, UNK FEW LOZENGES
     Route: 048
     Dates: start: 201711
  2. NICOPASS [Suspect]
     Active Substance: NICOTINE
     Dosage: 2.5 MG, UNK (FEW LOZENGES) , NEEDED TO TOOK 8/10 (SMOKING CESSATION THERAPY)
     Route: 048
  3. NICOPATCH [Suspect]
     Active Substance: NICOTINE
     Indication: SMOKING CESSATION THERAPY
     Dosage: 3 DF, QD
     Route: 062
     Dates: start: 201711, end: 2018
  4. NICOPASS [Suspect]
     Active Substance: NICOTINE
     Dosage: 1.5 MG, UNK
     Route: 048

REACTIONS (4)
  - Intentional product use issue [Unknown]
  - Drug dependence [Not Recovered/Not Resolved]
  - Prescribed overdose [Unknown]
  - Off label use [Unknown]
